FAERS Safety Report 4417986-1 (Version None)
Quarter: 2004Q3

REPORT INFORMATION
  Report Type: 
  Country: None (occurrence: None)
  Receive Date: 20040804
  Receipt Date: 20040728
  Transmission Date: 20050211
  Serious: Yes (Hospitalization, Other)
  Sender: FDA-Public Use
  Company Number: GBWYE862029JUN04

PATIENT
  Age: 56 Year
  Sex: Female

DRUGS (16)
  1. TACROLIMUS, CONTROL FOR SIROLIMUS (TACROLIMUS, CONTROL FOR SIROLIMUS, [Suspect]
     Indication: IMMUNOSUPPRESSANT DRUG THERAPY
     Dates: end: 20040618
  2. MYCOPHENOLATE MOFETIL (MYCOPHENOLATE MOFETIL) [Concomitant]
  3. PREDNISOLONE [Concomitant]
  4. VERAPAMIL [Concomitant]
  5. CALCITRIOL [Concomitant]
  6. OMEPRAZOLE [Concomitant]
  7. CERIVASTATIN (CERIVASTATIN) [Concomitant]
  8. AMITRIPTYLINE (AMITRYPTYLINE) [Concomitant]
  9. DIAZEPAM [Concomitant]
  10. CIPROFLOXACIN [Concomitant]
  11. CARDURA [Concomitant]
  12. CYCLIZINE (CYCLIZINE) [Concomitant]
  13. IMODIUM [Concomitant]
  14. SPASMONAL (ALVERINE CITRATE) [Concomitant]
  15. ACETAMINOPHEN [Concomitant]
  16. GALFER (FERROUS FUMARATE) [Concomitant]

REACTIONS (5)
  - ABDOMINAL PAIN [None]
  - CHILLS [None]
  - FEELING ABNORMAL [None]
  - MALAISE [None]
  - PYREXIA [None]
